FAERS Safety Report 23026568 (Version 1)
Quarter: 2023Q4

REPORT INFORMATION
  Report Type: Spontaneous
  Country: US (occurrence: US)
  Receive Date: 20231004
  Receipt Date: 20231004
  Transmission Date: 20240109
  Serious: Yes (Death, Life-Threatening, Hospitalization)
  Sender: FDA-Public Use
  Company Number: US-drreddys-LIT/USA/23/0178621

PATIENT
  Age: 27 Year
  Sex: Male

DRUGS (4)
  1. FLUMAZENIL [Suspect]
     Active Substance: FLUMAZENIL
     Indication: Overdose
  2. FLUMAZENIL [Suspect]
     Active Substance: FLUMAZENIL
     Dosage: SEVERAL DOSES
  3. NALOXONE HYDROCHLORIDE [Suspect]
     Active Substance: NALOXONE HYDROCHLORIDE
     Indication: Drug use disorder
     Dosage: SEVERAL DOSES
  4. NALOXONE HYDROCHLORIDE [Suspect]
     Active Substance: NALOXONE HYDROCHLORIDE
     Indication: Overdose

REACTIONS (7)
  - Cardiac arrest [Fatal]
  - Acidosis [Unknown]
  - Nervous system disorder [Unknown]
  - Brain oedema [Unknown]
  - Brain injury [Unknown]
  - Haematochezia [Unknown]
  - Drug ineffective [Unknown]
